FAERS Safety Report 16377717 (Version 1)
Quarter: 2019Q2

REPORT INFORMATION
  Report Type: Spontaneous
  Country: US (occurrence: US)
  Receive Date: 20190531
  Receipt Date: 20190531
  Transmission Date: 20190711
  Serious: No
  Sender: FDA-Public Use
  Company Number: US-MYLANLABS-2019M1046906

PATIENT
  Sex: Female
  Weight: 58 kg

DRUGS (1)
  1. ESTRADIOL TRANSDERMAL SYSTEM [Suspect]
     Active Substance: ESTRADIOL
     Indication: MENOPAUSE
     Dosage: UNK
     Route: 062
     Dates: start: 201708

REACTIONS (4)
  - Application site pruritus [Not Recovered/Not Resolved]
  - Application site rash [Not Recovered/Not Resolved]
  - Dermatitis [Unknown]
  - Application site mass [Not Recovered/Not Resolved]

NARRATIVE: CASE EVENT DATE: 201708
